FAERS Safety Report 11921276 (Version 1)
Quarter: 2016Q1

REPORT INFORMATION
  Report Type: Spontaneous
  Country: US (occurrence: US)
  Receive Date: 20160115
  Receipt Date: 20160115
  Transmission Date: 20160526
  Serious: No
  Sender: FDA-Public Use
  Company Number: US-ASTELLAS-2015US046988

PATIENT
  Sex: Male

DRUGS (2)
  1. MYRBETRIQ [Suspect]
     Active Substance: MIRABEGRON
     Indication: URINARY INCONTINENCE
  2. MYRBETRIQ [Suspect]
     Active Substance: MIRABEGRON
     Indication: BLADDER SPASM
     Route: 065
     Dates: start: 20151012, end: 20151201

REACTIONS (4)
  - Nocturia [Unknown]
  - Micturition urgency [Unknown]
  - Dysuria [Unknown]
  - Urge incontinence [Not Recovered/Not Resolved]

NARRATIVE: CASE EVENT DATE: 201511
